FAERS Safety Report 9699938 (Version 6)
Quarter: 2014Q1

REPORT INFORMATION
  Report Type: Report from Study
  Country: DE (occurrence: DE)
  Receive Date: 20131121
  Receipt Date: 20140131
  Transmission Date: 20141002
  Serious: Yes (Death)
  Sender: FDA-Public Use
  Company Number: DE-ROCHE-1301562

PATIENT
  Age: 67 Year
  Sex: Female
  Weight: 62 kg

DRUGS (4)
  1. TOCILIZUMAB [Suspect]
     Indication: RHEUMATOID ARTHRITIS
     Route: 042
     Dates: start: 20130815
  2. TOCILIZUMAB [Suspect]
     Route: 042
     Dates: start: 20130910
  3. METHOTREXATE [Concomitant]
     Route: 051
     Dates: start: 199504
  4. DICLOFENAC [Concomitant]
     Route: 065
     Dates: start: 200002

REACTIONS (3)
  - Gallbladder perforation [Fatal]
  - Cholecystitis [Fatal]
  - Sepsis [Fatal]
